FAERS Safety Report 15810726 (Version 1)
Quarter: 2019Q1

REPORT INFORMATION
  Report Type: Spontaneous
  Country: GB (occurrence: GB)
  Receive Date: 20190111
  Receipt Date: 20190111
  Transmission Date: 20190417
  Serious: Yes (Other)
  Sender: FDA-Public Use
  Company Number: GB-TEVA-2019-GB-997209

PATIENT
  Age: 73 Year
  Sex: Female
  Weight: 66.22 kg

DRUGS (18)
  1. LAXIDO [Concomitant]
     Active Substance: POLYETHYLENE GLYCOL 3350\POTASSIUM CHLORIDE\SODIUM BICARBONATE\SODIUM CHLORIDE
  2. AMLODIPINE [Concomitant]
     Active Substance: AMLODIPINE BESYLATE
  3. AUDAVATE [Concomitant]
  4. VITAMINS NOS [Concomitant]
     Active Substance: VITAMINS
     Route: 065
  5. VITAMIN D [Concomitant]
     Active Substance: CHOLECALCIFEROL
  6. SHORTEC [Concomitant]
     Active Substance: OXYCODONE HYDROCHLORIDE
  7. RANITIDINE. [Concomitant]
     Active Substance: RANITIDINE
  8. ESTRIOL [Concomitant]
     Active Substance: ESTRIOL
     Route: 065
  9. GAVISCON ADVANCE [Concomitant]
     Active Substance: POTASSIUM BICARBONATE\SODIUM ALGINATE
  10. RAMIPRIL. [Concomitant]
     Active Substance: RAMIPRIL
  11. AMOXICILLIN TRIHYDRATE [Suspect]
     Active Substance: AMOXICILLIN
     Indication: POST PROCEDURAL INFECTION
     Dosage: 3 GRAM DAILY;
     Route: 048
     Dates: start: 20180802, end: 20181024
  12. VAGIFEM [Concomitant]
     Active Substance: ESTRADIOL
  13. ATORVASTATIN [Concomitant]
     Active Substance: ATORVASTATIN
  14. CLOTRIMAZOLE. [Concomitant]
     Active Substance: CLOTRIMAZOLE
  15. CANESTEN [Concomitant]
     Active Substance: CLOTRIMAZOLE
     Route: 065
  16. DIAZEPAM. [Concomitant]
     Active Substance: DIAZEPAM
  17. HYDROCORTISONE CREAM [Concomitant]
     Active Substance: HYDROCORTISONE
  18. FLUCONAZOLE. [Concomitant]
     Active Substance: FLUCONAZOLE

REACTIONS (1)
  - Hypoacusis [Recovering/Resolving]

NARRATIVE: CASE EVENT DATE: 20180812
